FAERS Safety Report 4718988-8 (Version None)
Quarter: 2005Q3

REPORT INFORMATION
  Report Type: 
  Country: None (occurrence: None)
  Receive Date: 20050719
  Receipt Date: 20050704
  Transmission Date: 20060218
  Serious: Yes (Other)
  Sender: FDA-Public Use
  Company Number: FR_050306001

PATIENT
  Age: 64 Year
  Sex: Female
  Weight: 62 kg

DRUGS (4)
  1. EVISTA [Suspect]
     Indication: OSTEOPOROSIS
     Dosage: 60 MG DAY
     Dates: start: 20020301, end: 20050120
  2. POLY-KARAYA [Concomitant]
  3. DOSPATALIN                 (MEBEVERINE HYDROCHLORIDE) [Concomitant]
  4. GINKOR FORT [Concomitant]

REACTIONS (1)
  - BREAST CANCER IN SITU [None]
